FAERS Safety Report 10530875 (Version 1)
Quarter: 2014Q4

REPORT INFORMATION
  Report Type: Spontaneous
  Country: US (occurrence: None)
  Receive Date: 20141020
  Receipt Date: 20141020
  Transmission Date: 20150528
  Serious: No
  Sender: FDA-Public Use
  Company Number: None

PATIENT

DRUGS (2)
  1. CHLORHEXIDINE GLUCONATE. [Suspect]
     Active Substance: CHLORHEXIDINE GLUCONATE
     Dosage: LIQUID ORAL 0.12 % UNIT DOSE CUP 15 ML
  2. LIDOCAINE HYDROCHLORIDE. [Suspect]
     Active Substance: LIDOCAINE HYDROCHLORIDE
     Dosage: LIQUID ORAL 2 % UNIT DOSE CUP 15 ML
     Route: 048

REACTIONS (2)
  - Intercepted drug dispensing error [None]
  - Product label confusion [None]
